FAERS Safety Report 5269892-0 (Version None)
Quarter: 2007Q1

REPORT INFORMATION
  Report Type: 
  Country: None (occurrence: None)
  Receive Date: 20070320
  Receipt Date: 20070314
  Transmission Date: 20070707
  Serious: Yes (Death, Hospitalization)
  Sender: FDA-Public Use
  Company Number: ES-GLAXOSMITHKLINE-B0462410A

PATIENT
  Age: 54 Year
  Sex: Male
  Weight: 45 kg

DRUGS (2)
  1. AUGMENTIN '125' [Suspect]
     Indication: ABDOMINAL PAIN
     Route: 048
     Dates: start: 20061005, end: 20061015
  2. IBUPROFEN [Suspect]
     Indication: ABDOMINAL PAIN
     Dosage: 1.8G THREE TIMES PER DAY
     Route: 048
     Dates: start: 20061015, end: 20061025

REACTIONS (1)
  - HEPATITIS [None]
